FAERS Safety Report 5975995-5 (Version None)
Quarter: 2008Q4

REPORT INFORMATION
  Report Type: 
  Country: None (occurrence: None)
  Receive Date: 20081202
  Receipt Date: 20081126
  Transmission Date: 20090506
  Serious: Yes (Disabling)
  Sender: FDA-Public Use
  Company Number: JP-BRACCO-001475

PATIENT
  Age: 57 Year
  Sex: Female

DRUGS (2)
  1. IOPAMIDOL [Suspect]
     Indication: COMPUTERISED TOMOGRAM ABDOMEN
     Route: 042
     Dates: start: 20081115, end: 20081115
  2. RINGER [Concomitant]
     Route: 065
     Dates: start: 20081115, end: 20081115

REACTIONS (4)
  - NAUSEA [None]
  - PHOTOPSIA [None]
  - RETINAL VEIN OCCLUSION [None]
  - VOMITING [None]
